FAERS Safety Report 11257957 (Version 4)
Quarter: 2018Q4

REPORT INFORMATION
  Report Type: Report from Study
  Country: BR (occurrence: BR)
  Receive Date: 20150710
  Receipt Date: 20181023
  Transmission Date: 20190204
  Serious: Yes (Other)
  Sender: FDA-Public Use
  Company Number: BR-ROCHE-1499228

PATIENT
  Age: 36 Year
  Sex: Female
  Weight: 80 kg

DRUGS (24)
  1. MABTHERA [Suspect]
     Active Substance: RITUXIMAB
     Indication: RHEUMATOID ARTHRITIS
     Dosage: 1ST CYCLE
     Route: 042
     Dates: start: 20130825
  2. MABTHERA [Suspect]
     Active Substance: RITUXIMAB
     Dosage: 1ST CYCLE
     Route: 042
     Dates: start: 20130908
  3. MABTHERA [Suspect]
     Active Substance: RITUXIMAB
     Dosage: 2ND CYCLE
     Route: 042
     Dates: start: 20140301
  4. MABTHERA [Suspect]
     Active Substance: RITUXIMAB
     Dosage: 2ND CYCLE
     Route: 042
     Dates: start: 20140315
  5. HYDROCHLOROTHIAZIDE. [Concomitant]
     Active Substance: HYDROCHLOROTHIAZIDE
     Indication: HYPERTENSION
     Route: 065
  6. ENALAPRIL [Concomitant]
     Active Substance: ENALAPRIL
     Indication: HYPERTENSION
     Route: 065
  7. HYDROCHLOROTHIAZIDE. [Concomitant]
     Active Substance: HYDROCHLOROTHIAZIDE
     Indication: HYPERTENSION
     Route: 065
  8. PURAN [Concomitant]
     Active Substance: LEVOTHYROXINE SODIUM
     Indication: HYPOTHYROIDISM
     Route: 065
  9. ESCITALOPRAM [Concomitant]
     Active Substance: ESCITALOPRAM OXALATE
  10. METHOTREXATE. [Concomitant]
     Active Substance: METHOTREXATE
  11. LEVOFLOXACIN. [Concomitant]
     Active Substance: LEVOFLOXACIN
     Indication: RHEUMATOID ARTHRITIS
  12. ACTEMRA [Suspect]
     Active Substance: TOCILIZUMAB
     Indication: RHEUMATOID ARTHRITIS
     Route: 042
     Dates: start: 2016
  13. PREDNISONE. [Concomitant]
     Active Substance: PREDNISONE
     Indication: RHEUMATOID ARTHRITIS
     Route: 065
  14. ELANI [Concomitant]
     Indication: CONTRACEPTION
     Route: 065
  15. MABTHERA [Suspect]
     Active Substance: RITUXIMAB
     Dosage: 3ND CYCLE
     Route: 042
     Dates: start: 201412
  16. HYDROCHLOROTHIAZIDE. [Concomitant]
     Active Substance: HYDROCHLOROTHIAZIDE
     Route: 065
  17. DIPYRONE [Concomitant]
     Active Substance: DIPYRONE
  18. PREDNISONE. [Concomitant]
     Active Substance: PREDNISONE
     Route: 065
  19. PREDNISONE. [Concomitant]
     Active Substance: PREDNISONE
     Route: 065
  20. NITRENDIPINE [Concomitant]
     Active Substance: NITRENDIPINE
     Indication: HYPERTENSION
  21. ARAVA [Concomitant]
     Active Substance: LEFLUNOMIDE
     Indication: RHEUMATOID ARTHRITIS
     Route: 065
  22. ENALAPRIL [Concomitant]
     Active Substance: ENALAPRIL
     Route: 065
  23. OMEPRAZOLE. [Concomitant]
     Active Substance: OMEPRAZOLE
     Route: 065
  24. HYDROCHLOROTHIAZIDE. [Concomitant]
     Active Substance: HYDROCHLOROTHIAZIDE
     Indication: HYPERTENSION

REACTIONS (20)
  - Hyperthyroidism [Not Recovered/Not Resolved]
  - C-reactive protein abnormal [Unknown]
  - Pain [Recovering/Resolving]
  - Hypersensitivity [Unknown]
  - Thyroid disorder [Unknown]
  - Therapeutic response decreased [Unknown]
  - Immunodeficiency [Recovering/Resolving]
  - Feeling abnormal [Unknown]
  - Osteoarthritis [Not Recovered/Not Resolved]
  - Weight loss poor [Unknown]
  - Sepsis [Recovering/Resolving]
  - Hypertension [Not Recovered/Not Resolved]
  - Weight abnormal [Not Recovered/Not Resolved]
  - Treatment noncompliance [Unknown]
  - Red blood cell sedimentation rate abnormal [Unknown]
  - Arthralgia [Recovering/Resolving]
  - Drug ineffective [Unknown]
  - Influenza [Recovered/Resolved]
  - Secretion discharge [Unknown]
  - Pain [Recovering/Resolving]

NARRATIVE: CASE EVENT DATE: 20140113
